FAERS Safety Report 4886833-6 (Version None)
Quarter: 2006Q1

REPORT INFORMATION
  Report Type: 
  Country: None (occurrence: None)
  Receive Date: 20060120
  Receipt Date: 20060117
  Transmission Date: 20060701
  Serious: Yes (Death)
  Sender: FDA-Public Use
  Company Number: FR-ABBOTT-06P-056-0322632-00

PATIENT
  Sex: Female

DRUGS (7)
  1. HUMIRA [Suspect]
     Indication: RHEUMATOID ARTHRITIS
     Route: 058
     Dates: start: 20040303, end: 20060115
  2. PREDNISONE [Concomitant]
     Indication: RHEUMATOID ARTHRITIS
     Dates: end: 20060115
  3. CANDESARTAN CILEXETIL [Concomitant]
     Indication: HYPERTENSION
     Dates: end: 20060115
  4. FENOFIBRATE [Concomitant]
     Indication: DYSLIPIDAEMIA
     Dates: end: 20060115
  5. VASTAREL [Concomitant]
     Indication: DRUG USE FOR UNKNOWN INDICATION
     Dates: end: 20060115
  6. OMEPRAZOLE [Concomitant]
     Indication: STEROID THERAPY
     Dates: end: 20060115
  7. CALCIUM CARBONATE [Concomitant]
     Indication: STEROID THERAPY
     Dates: end: 20060115

REACTIONS (1)
  - CEREBROVASCULAR ACCIDENT [None]
